FAERS Safety Report 24717310 (Version 1)
Quarter: 2024Q4

REPORT INFORMATION
  Report Type: Spontaneous
  Country: JP (occurrence: JP)
  Receive Date: 20241210
  Receipt Date: 20241210
  Transmission Date: 20250115
  Serious: Yes (Life-Threatening, Hospitalization)
  Sender: PFIZER
  Company Number: JP-PFIZER INC-PV202400157235

PATIENT
  Age: 6 Decade
  Sex: Male

DRUGS (3)
  1. NIRMATRELVIR\RITONAVIR [Interacting]
     Active Substance: NIRMATRELVIR\RITONAVIR
     Indication: COVID-19 treatment
     Dosage: 150 MG/100 MG PER DOSE, TWICE A DAY FOR 5 DAYS
  2. TACROLIMUS [Interacting]
     Active Substance: TACROLIMUS
     Indication: Myelodysplastic syndrome
     Dosage: 2 MG, DAILY
     Route: 048
  3. TACROLIMUS [Interacting]
     Active Substance: TACROLIMUS
     Dosage: 1 MG, DAILY
     Route: 048

REACTIONS (4)
  - Drug interaction [Recovering/Resolving]
  - Drug level increased [Recovering/Resolving]
  - Acute kidney injury [Recovering/Resolving]
  - Metabolic acidosis [Recovering/Resolving]
